FAERS Safety Report 21134082 (Version 1)
Quarter: 2022Q3

REPORT INFORMATION
  Report Type: Spontaneous
  Country: US (occurrence: US)
  Receive Date: 20220726
  Receipt Date: 20220726
  Transmission Date: 20221027
  Serious: Yes (Life-Threatening, Disabling)
  Sender: FDA-Public Use
  Company Number: US-AMERICAN REGENT INC-2022000702

PATIENT
  Sex: Female
  Weight: 114.86 kg

DRUGS (6)
  1. FERRIC CARBOXYMALTOSE [Suspect]
     Active Substance: FERRIC CARBOXYMALTOSE
     Indication: Iron deficiency anaemia
     Dosage: 750 MG IN 250 ML SODIUM CHLORIDE 0.9%
     Route: 042
     Dates: start: 20190308, end: 20190308
  2. FERRIC CARBOXYMALTOSE [Suspect]
     Active Substance: FERRIC CARBOXYMALTOSE
     Dosage: 750 MG IN 250 ML SODIUM CHLORIDE 0.9%
     Route: 042
     Dates: start: 20190315, end: 20190315
  3. SODIUM CHLORIDE [Concomitant]
     Active Substance: SODIUM CHLORIDE
     Indication: Catheter management
     Dosage: 20 MILLILITER, SINGLE (ANTECUBITAL, RIGHT 24 GAUGE)
     Route: 042
     Dates: start: 20190308, end: 20190308
  4. SODIUM CHLORIDE [Concomitant]
     Active Substance: SODIUM CHLORIDE
     Dosage: 10 MILLILITER, SINGLE (ANTECUBITAL, RIGHT 24 GAUGE)
     Route: 042
     Dates: start: 20190315, end: 20190315
  5. CYANOCOBALAMIN [Concomitant]
     Active Substance: CYANOCOBALAMIN
     Indication: Vitamin B12 deficiency
     Dosage: 1 ML EVERY MONTH
     Route: 058
  6. HEMAX [ASCORBIC ACID;BIOTIN;COBALT SULFATE;COPPER SULFATE;CYANOCOBALAM [Concomitant]
     Indication: Iron deficiency anaemia
     Dosage: 1 TAB DAILY
     Route: 048

REACTIONS (11)
  - Pain [Not Recovered/Not Resolved]
  - Arrhythmia [Not Recovered/Not Resolved]
  - Asthenia [Not Recovered/Not Resolved]
  - Hypophosphataemia [Not Recovered/Not Resolved]
  - Dizziness [Not Recovered/Not Resolved]
  - Anhedonia [Not Recovered/Not Resolved]
  - Emotional distress [Not Recovered/Not Resolved]
  - Anxiety [Not Recovered/Not Resolved]
  - Vomiting [Unknown]
  - Nausea [Unknown]
  - Product quality issue [Unknown]

NARRATIVE: CASE EVENT DATE: 20190101
